FAERS Safety Report 6057140-3 (Version None)
Quarter: 2009Q1

REPORT INFORMATION
  Report Type: 
  Country: None (occurrence: None)
  Receive Date: 20090129
  Receipt Date: 20090122
  Transmission Date: 20090719
  Serious: Yes (Hospitalization)
  Sender: FDA-Public Use
  Company Number: MX-MERCK-0811MEX00011

PATIENT
  Age: 77 Year
  Sex: Male
  Weight: 73 kg

DRUGS (10)
  1. JANUMET [Suspect]
     Indication: DIABETES MELLITUS
     Route: 048
     Dates: start: 20080901, end: 20090108
  2. MOEXIPRIL HYDROCHLORIDE [Concomitant]
     Indication: HYPERTENSION
     Route: 048
     Dates: start: 20080101
  3. GINKGO [Concomitant]
     Indication: TINNITUS
     Route: 048
     Dates: start: 20080101
  4. DIPYRONE AND VITAMIN B (UNSPECIFIED) [Concomitant]
     Indication: BACK PAIN
     Route: 048
     Dates: start: 20060101
  5. LANSOPRAZOLE [Concomitant]
     Indication: GASTRITIS
     Route: 048
     Dates: start: 20080101
  6. OMEPRAZOLE [Concomitant]
     Indication: GASTRITIS
     Route: 048
     Dates: start: 20070101, end: 20081001
  7. LIDAMIDINE HYDROCHLORIDE [Concomitant]
     Indication: DIARRHOEA
     Route: 048
     Dates: start: 20030101
  8. MINERALS (UNSPECIFIED) AND VITAMINS (UNSPECIFIED) [Concomitant]
     Indication: MEDICAL DIET
     Route: 048
     Dates: start: 20080101
  9. METHYLPHENIDATE HYDROCHLORIDE [Concomitant]
     Indication: CENTRAL NERVOUS SYSTEM STIMULATION
     Route: 048
     Dates: start: 20080101
  10. SITAGLIPTIN PHOSPHATE [Concomitant]
     Indication: DIABETES MELLITUS
     Route: 048
     Dates: start: 20080101, end: 20080901

REACTIONS (5)
  - DEHYDRATION [None]
  - DIARRHOEA [None]
  - DRUG INEFFECTIVE [None]
  - HYPERHIDROSIS [None]
  - TENSION [None]
